FAERS Safety Report 5601997-4 (Version None)
Quarter: 2008Q1

REPORT INFORMATION
  Report Type: 
  Country: None (occurrence: None)
  Receive Date: 20080118
  Receipt Date: 20070813
  Transmission Date: 20080703
  Serious: Yes (Other)
  Sender: FDA-Public Use
  Company Number: CHNY2007DE02896

PATIENT
  Age: 29 Year
  Sex: Female

DRUGS (2)
  1. OTRIVIN [Suspect]
     Indication: NASAL CONGESTION
     Dosage: NASAL
     Route: 045
  2. GELOMYRTOL FORTE (CINEOLE, EXTRACTUM TILIAE, MYRTOL, TILIA SPP. EXTRAC [Concomitant]

REACTIONS (2)
  - DRUG EXPOSURE DURING PREGNANCY [None]
  - INCORRECT DRUG ADMINISTRATION DURATION [None]
